FAERS Safety Report 15793829 (Version 2)
Quarter: 2019Q1

REPORT INFORMATION
  Report Type: Spontaneous
  Country: CA (occurrence: CA)
  Receive Date: 20190107
  Receipt Date: 20190110
  Transmission Date: 20190417
  Serious: Yes (Hospitalization, Other)
  Sender: FDA-Public Use
  Company Number: CA-BAYER-2019-002879

PATIENT

DRUGS (48)
  1. APO-CAL [Suspect]
     Active Substance: CALCIUM CARBONATE
  2. CYMBALTA [Suspect]
     Active Substance: DULOXETINE HYDROCHLORIDE
     Dosage: 3 MG, QD
  3. DEXPANTHENOL. [Suspect]
     Active Substance: DEXPANTHENOL
  4. HYDROMORPHONE HYDROCHLORIDE. [Suspect]
     Active Substance: HYDROMORPHONE HYDROCHLORIDE
  5. LYRICA [Suspect]
     Active Substance: PREGABALIN
  6. MYCOPHENOLATE MOFETIL. [Suspect]
     Active Substance: MYCOPHENOLATE MOFETIL
  7. NORTRIPTYLINE HYDROCHLORIDE. [Suspect]
     Active Substance: NORTRIPTYLINE HYDROCHLORIDE
  8. FISH OIL [Suspect]
     Active Substance: FISH OIL
  9. NOVO-HYDRAZIDE [Suspect]
     Active Substance: HYDROCHLOROTHIAZIDE
  10. SENNOSIDES A+B [Suspect]
     Active Substance: SENNOSIDES A AND B
  11. SULFAMETHOXAZOLE [Suspect]
     Active Substance: SULFAMETHOXAZOLE
  12. ALENDRONATE SODIUM. [Suspect]
     Active Substance: ALENDRONATE SODIUM
  13. BIFIDOBACTERIUM ADOLESCENTIS [Suspect]
     Active Substance: BIFIDOBACTERIUM LONGUM
  14. VITAMIN B COMPLEX [Suspect]
     Active Substance: CYANOCOBALAMIN\DEXPANTHENOL\NIACINAMIDE\PYRIDOXINE HYDROCHLORIDE\RIBOFLAVIN 5^-PHOSPHATE SODIUM\THIAMINE HYDROCHLORIDE\VITAMIN B COMPLEX
  15. APO-ZOPICLONE [Suspect]
     Active Substance: ZOPICLONE
  16. CALCIUM CARBONATE. [Suspect]
     Active Substance: CALCIUM CARBONATE
  17. CYMBALTA [Suspect]
     Active Substance: DULOXETINE HYDROCHLORIDE
     Dosage: 1 UNK
  18. DOCOSAHEXAENOIC ACID [Suspect]
     Active Substance: DOCONEXENT
  19. DOCUSATE SODIUM. [Suspect]
     Active Substance: DOCUSATE SODIUM
  20. DULOXETINE HYDROCHLORIDE. [Suspect]
     Active Substance: DULOXETINE HYDROCHLORIDE
     Dosage: 1 UNK
  21. HYDROMORPHONE [Suspect]
     Active Substance: HYDROMORPHONE
  22. LORATADINE. [Suspect]
     Active Substance: LORATADINE
     Dosage: 10 MG
  23. APO-BACLOFEN [Suspect]
     Active Substance: BACLOFEN
  24. ASCORBIC ACID. [Suspect]
     Active Substance: ASCORBIC ACID
  25. GUAIFENESIN W/SULFAMETHOXAZOLE/TRIMETHOPRIM [Suspect]
     Active Substance: GUAIFENESIN\SULFAMETHOXAZOLE\TRIMETHOPRIM
  26. AMINOBENZOIC ACID [Suspect]
     Active Substance: AMINOBENZOIC ACID
  27. ANTITHYMOCYTE IMMUNOGLOBULIN [Suspect]
     Active Substance: THYMOCYTE IMMUNE GLOBULIN NOS
  28. ASCORBIC ACID. [Suspect]
     Active Substance: ASCORBIC ACID
  29. ZOPICLONE [Suspect]
     Active Substance: ZOPICLONE
  30. ERGOCALCIFEROL. [Suspect]
     Active Substance: ERGOCALCIFEROL
  31. TETANUS IMMUNE GLOBULIN (HUMAN) [Suspect]
     Active Substance: HUMAN CLOSTRIDIUM TETANI TOXOID IMMUNE GLOBULIN
  32. MOMETASONE FUROATE. [Suspect]
     Active Substance: MOMETASONE FUROATE
  33. NASONEX [Suspect]
     Active Substance: MOMETASONE FUROATE
  34. OMEGA-3 [DOCOSAHEXAENOIC ACID;EICOSAPENTAENOIC ACID] [Suspect]
     Active Substance: DOCONEXENT\ICOSAPENT
  35. PREDNISONE. [Suspect]
     Active Substance: PREDNISONE
  36. TIZANIDINE HYDROCHLORIDE. [Suspect]
     Active Substance: TIZANIDINE HYDROCHLORIDE
  37. WARFARIN [Suspect]
     Active Substance: WARFARIN
  38. ZANTAC [Suspect]
     Active Substance: RANITIDINE HYDROCHLORIDE
  39. ACIDOPHILUS [Suspect]
     Active Substance: LACTOBACILLUS ACIDOPHILUS
  40. ATIVAN [Suspect]
     Active Substance: LORAZEPAM
  41. BACLOFEN. [Suspect]
     Active Substance: BACLOFEN
  42. CYANOCOBALAMIN. [Suspect]
     Active Substance: CYANOCOBALAMIN
  43. CYANOCOBALAMIN. [Suspect]
     Active Substance: CYANOCOBALAMIN
  44. DULOXETINE HYDROCHLORIDE. [Suspect]
     Active Substance: DULOXETINE HYDROCHLORIDE
     Dosage: 3 MG, QD
  45. FUROSEMIDE. [Suspect]
     Active Substance: FUROSEMIDE
  46. IMODIUM [Suspect]
     Active Substance: LOPERAMIDE HYDROCHLORIDE
  47. NICOTINAMIDE [Suspect]
     Active Substance: NIACINAMIDE
  48. POTASSIUM CHLORIDE. [Suspect]
     Active Substance: POTASSIUM CHLORIDE

REACTIONS (4)
  - Coma [None]
  - Pneumonia aspiration [None]
  - Somnolence [None]
  - Gastrooesophageal reflux disease [None]
